FAERS Safety Report 6778085-7 (Version None)
Quarter: 2010Q2

REPORT INFORMATION
  Report Type: 
  Country: None (occurrence: None)
  Receive Date: 20100618
  Receipt Date: 20100609
  Transmission Date: 20101027
  Serious: No
  Sender: FDA-Public Use
  Company Number: US-BIOGENIDEC-2010BI019169

PATIENT
  Sex: Female

DRUGS (1)
  1. AVONEX [Suspect]
     Indication: MULTIPLE SCLEROSIS
     Route: 030
     Dates: end: 20030101

REACTIONS (4)
  - DRUG INEFFECTIVE [None]
  - INFLUENZA LIKE ILLNESS [None]
  - MULTIPLE SCLEROSIS [None]
  - NERVOUS SYSTEM DISORDER [None]
